FAERS Safety Report 9363360 (Version 1)
Quarter: 2013Q2

REPORT INFORMATION
  Report Type: Spontaneous
  Country: US (occurrence: None)
  Receive Date: 20130621
  Receipt Date: 20130621
  Transmission Date: 20140414
  Serious: No
  Sender: FDA-Public Use
  Company Number: None

PATIENT
  Age: 40 Year
  Sex: Male

DRUGS (1)
  1. COPAXONE 20 MG TEVA [Suspect]
     Indication: MULTIPLE SCLEROSIS
     Dates: start: 200810

REACTIONS (4)
  - Injection site bruising [None]
  - Injection site urticaria [None]
  - Injection site haemorrhage [None]
  - Wrong technique in drug usage process [None]
